FAERS Safety Report 6770657 (Version 16)
Quarter: 2015Q4

REPORT INFORMATION
  Report Type: Report from Study
  Country: CA (occurrence: CA)
  Receive Date: 20080925
  Receipt Date: 20151118
  Transmission Date: 20160305
  Serious: Yes (Hospitalization, Other)
  Sender: FDA-Public Use
  Company Number: PHHY2008CA21487

PATIENT
  Sex: Female

DRUGS (6)
  1. AFINITOR [Suspect]
     Active Substance: EVEROLIMUS
     Indication: NEUROENDOCRINE TUMOUR
     Dosage: 10 MG, QD
     Route: 048
     Dates: start: 20140428
  2. SANDOSTATIN LAR DEPOT [Suspect]
     Active Substance: OCTREOTIDE ACETATE
     Dosage: 40 MG, EVERY 4 WEEKS
     Route: 030
  3. SANDOSTATIN LAR DEPOT [Suspect]
     Active Substance: OCTREOTIDE ACETATE
     Indication: NEUROENDOCRINE TUMOUR
     Dosage: 30 MG, ONCE MONTHLY
     Route: 030
     Dates: start: 20070924
  4. SANDOSTATIN LAR DEPOT [Suspect]
     Active Substance: OCTREOTIDE ACETATE
     Dosage: 40 MG, QMO
     Route: 030
  5. SANDOSTATIN LAR DEPOT [Suspect]
     Active Substance: OCTREOTIDE ACETATE
     Dosage: 30 MG, ONCE MONTHLY
     Route: 030
  6. SANDOSTATIN LAR DEPOT [Suspect]
     Active Substance: OCTREOTIDE ACETATE
     Dosage: 40 MG, EVERY THREE WEEKS
     Route: 030

REACTIONS (13)
  - Pyrexia [Unknown]
  - Cholangitis [Not Recovered/Not Resolved]
  - Inappropriate schedule of drug administration [Unknown]
  - Liver disorder [Unknown]
  - Bile duct obstruction [Unknown]
  - Abdominal pain [Unknown]
  - Infection [Not Recovered/Not Resolved]
  - Diabetes mellitus [Unknown]
  - Nausea [Unknown]
  - Stress [Unknown]
  - General physical health deterioration [Unknown]
  - Enterococcus test positive [Unknown]
  - Blood chromogranin A increased [Unknown]
